FAERS Safety Report 19880760 (Version 4)
Quarter: 2021Q4

REPORT INFORMATION
  Report Type: Report from Study
  Country: US (occurrence: US)
  Receive Date: 20210925
  Receipt Date: 20211108
  Transmission Date: 20220303
  Serious: Yes (Other)
  Sender: FDA-Public Use
  Company Number: NVSC2021US217427

PATIENT
  Sex: Female

DRUGS (2)
  1. TABRECTA [Suspect]
     Active Substance: CAPMATINIB
     Indication: Lung carcinoma cell type unspecified stage I
     Dosage: UNK (VIA MOUTH)
     Route: 048
     Dates: start: 20210825
  2. TABRECTA [Suspect]
     Active Substance: CAPMATINIB
     Dosage: 200 MG, BID
     Route: 065
     Dates: start: 202109

REACTIONS (4)
  - Renal impairment [Unknown]
  - Vomiting [Recovered/Resolved]
  - Blood creatinine increased [Unknown]
  - Blood urea increased [Recovered/Resolved]
